FAERS Safety Report 24738883 (Version 4)
Quarter: 2025Q1

REPORT INFORMATION
  Report Type: Spontaneous
  Country: JP (occurrence: JP)
  Receive Date: 20241216
  Receipt Date: 20250321
  Transmission Date: 20250409
  Serious: Yes (Death, Life-Threatening, Hospitalization, Other)
  Sender: BRISTOL-MYERS SQUIBB COMPANY
  Company Number: JP-TAIHO-2024-011460

PATIENT
  Age: 73 Year
  Sex: Male

DRUGS (8)
  1. ABRAXANE [Suspect]
     Active Substance: PACLITAXEL
     Indication: Pancreatic carcinoma
     Dosage: ON DAYS 1, 8, AND 15 OF EACH 28-DAY CYCLE; 1 CYCLE DAILY DOSE: 220 MILLIGRAM(S) NI, 1 CYCLE
     Route: 041
     Dates: start: 20240827, end: 20240930
  2. GEMCITABINE HYDROCHLORIDE [Suspect]
     Active Substance: GEMCITABINE HYDROCHLORIDE
     Indication: Pancreatic carcinoma
     Dosage: ON DAYS 1, 8, AND 15 OF EACH 28-DAY CYCLE; 1 CYCLE DAILY DOSE: 1799 MILLIGRAM(S)
     Route: 041
     Dates: start: 20240827, end: 20240930
  3. ALOXI [Suspect]
     Active Substance: PALONOSETRON HYDROCHLORIDE
     Indication: Premedication
     Dosage: ON DAYS 1, 8, AND 15 OF EACH 28-DAY CYCLE; 1 CYCLE DAILY DOSE: 0.75 MILLIGRAM(S)
     Route: 041
     Dates: start: 20240827, end: 20240930
  4. ZOSYN [Suspect]
     Active Substance: PIPERACILLIN SODIUM\TAZOBACTAM SODIUM
     Indication: Product used for unknown indication
     Route: 041
     Dates: start: 20241006, end: 20241030
  5. DEXAMETHASONE SODIUM PHOSPHATE [Concomitant]
     Active Substance: DEXAMETHASONE SODIUM PHOSPHATE
     Indication: Premedication
     Dosage: ON DAYS 1, 8, AND 15 OF EACH 28-DAY CYCLE; 1 CYCLE DAILY DOSE: 6.6 MILLIGRAM(S)
     Route: 041
     Dates: start: 20240827, end: 20240930
  6. VONOPRAZAN FUMARATE [Concomitant]
     Active Substance: VONOPRAZAN FUMARATE
     Indication: Gastric ulcer
     Route: 048
     Dates: end: 20241006
  7. AMLODIPINE [Concomitant]
     Active Substance: AMLODIPINE BESYLATE
     Indication: Hypertension
     Route: 048
     Dates: end: 20241006
  8. SULFAMETHOXAZOLE\TRIMETHOPRIM [Concomitant]
     Active Substance: SULFAMETHOXAZOLE\TRIMETHOPRIM
     Indication: Product used for unknown indication
     Route: 048
     Dates: start: 20241006

REACTIONS (7)
  - Candida pneumonia [Fatal]
  - Pulmonary toxicity [Fatal]
  - Pneumothorax [Unknown]
  - Febrile neutropenia [Recovered/Resolved]
  - Deep vein thrombosis [Unknown]
  - Anaemia [Unknown]
  - Bloody discharge [Recovering/Resolving]

NARRATIVE: CASE EVENT DATE: 20240909
